FAERS Safety Report 10900199 (Version 2)
Quarter: 2015Q2

REPORT INFORMATION
  Report Type: Report from Study
  Country: CZ (occurrence: CZ)
  Receive Date: 20150310
  Receipt Date: 20150615
  Transmission Date: 20150821
  Serious: Yes (Death, Other)
  Sender: FDA-Public Use
  Company Number: CZ-UCBSA-2015006326

PATIENT
  Age: 70 Year
  Sex: Male

DRUGS (1)
  1. CERTOLIZUMAB PEGOL [Suspect]
     Active Substance: CERTOLIZUMAB PEGOL
     Indication: RHEUMATOID ARTHRITIS
     Dosage: 200 MG, EV 2 WEEKS(QOW)
     Dates: start: 20141205, end: 20150113

REACTIONS (2)
  - Staphylococcal sepsis [Unknown]
  - Multi-organ failure [Fatal]

NARRATIVE: CASE EVENT DATE: 2015
